FAERS Safety Report 16990263 (Version 1)
Quarter: 2019Q4

REPORT INFORMATION
  Report Type: Spontaneous
  Country: US (occurrence: US)
  Receive Date: 20191102
  Receipt Date: 20191102
  Transmission Date: 20200122
  Serious: Yes (Disabling, Other)
  Sender: FDA-Public Use
  Company Number: None

PATIENT
  Age: 56 Year
  Sex: Female
  Weight: 53.55 kg

DRUGS (6)
  1. MYCOPHENOLATE [Concomitant]
     Active Substance: MYCOPHENOLIC ACID
  2. TACROLIMUS. [Concomitant]
     Active Substance: TACROLIMUS
  3. SYNTHROID [Concomitant]
     Active Substance: LEVOTHYROXINE SODIUM
  4. ALPRAZOLAM. [Concomitant]
     Active Substance: ALPRAZOLAM
  5. DYSPORT [Suspect]
     Active Substance: ABOBOTULINUMTOXINA
     Indication: SKIN COSMETIC PROCEDURE
     Dates: start: 20191015, end: 20191015
  6. PREDNISONE. [Concomitant]
     Active Substance: PREDNISONE

REACTIONS (15)
  - Rhinorrhoea [None]
  - Injection site reaction [None]
  - Arrhythmia [None]
  - Headache [None]
  - Chills [None]
  - Nasal discomfort [None]
  - Eyelid ptosis [None]
  - Nausea [None]
  - Sinusitis [None]
  - Malaise [None]
  - Upper respiratory tract infection [None]
  - Swelling of eyelid [None]
  - Pruritus [None]
  - Throat irritation [None]
  - Rash [None]

NARRATIVE: CASE EVENT DATE: 20191015
